FAERS Safety Report 4600939-8 (Version None)
Quarter: 2005Q1

REPORT INFORMATION
  Report Type: 
  Country: None (occurrence: None)
  Receive Date: 20050127
  Receipt Date: 20041027
  Transmission Date: 20050727
  Serious: No
  Sender: FDA-Public Use
  Company Number: USA041082194

PATIENT
  Age: 33 Year
  Sex: Female
  Weight: 46 kg

DRUGS (2)
  1. STRATTERA [Suspect]
     Indication: PANIC DISORDER
     Dosage: 60 MG/1 DAY
     Dates: start: 20041001
  2. XANAX [Concomitant]

REACTIONS (9)
  - DISEASE PROGRESSION [None]
  - DRUG WITHDRAWAL SYNDROME [None]
  - DRY MOUTH [None]
  - HALLUCINATION [None]
  - HEADACHE [None]
  - HEART RATE INCREASED [None]
  - INSOMNIA [None]
  - NIGHT SWEATS [None]
  - PANIC ATTACK [None]
